FAERS Safety Report 9259555 (Version 1)
Quarter: 2013Q2

REPORT INFORMATION
  Report Type: Spontaneous
  Country: BE (occurrence: BE)
  Receive Date: 20130429
  Receipt Date: 20130429
  Transmission Date: 20140414
  Serious: Yes (Death)
  Sender: FDA-Public Use
  Company Number: BE-AMGEN-BELSP2013014425

PATIENT
  Age: 59 Year
  Sex: Male
  Weight: 55 kg

DRUGS (2)
  1. XGEVA [Suspect]
     Indication: METASTASES TO BONE
     Dosage: 120 MG, Q4WK
     Route: 058
     Dates: start: 20120822, end: 20120919
  2. GEMCITABINE [Concomitant]
     Dosage: 600 MG/M2, QWK
     Route: 042
     Dates: start: 20120813, end: 20121010

REACTIONS (4)
  - Disease progression [Fatal]
  - Cardio-respiratory arrest [Fatal]
  - General physical health deterioration [Fatal]
  - Hypercalcaemia [Not Recovered/Not Resolved]
